FAERS Safety Report 18770985 (Version 3)
Quarter: 2021Q2

REPORT INFORMATION
  Report Type: Report from Study
  Country: US (occurrence: US)
  Receive Date: 20210121
  Receipt Date: 20210417
  Transmission Date: 20210717
  Serious: No
  Sender: FDA-Public Use
  Company Number: NVSC2021US012603

PATIENT
  Sex: Female

DRUGS (2)
  1. PREDNISONE. [Concomitant]
     Active Substance: PREDNISONE
     Indication: PRODUCT USED FOR UNKNOWN INDICATION
     Dosage: UNK, PREDNISONE TAPER FOR THREE DAYS
     Route: 065
  2. COSENTYX [Suspect]
     Active Substance: SECUKINUMAB
     Indication: PSORIASIS
     Dosage: 300 MG, 300 MG Q WEEK FOR FIVE WEEKS AND THEN Q FOUR WEEKS, BENEATH THE SKIN, USUALLY VIA INJECTION.
     Route: 058
     Dates: start: 20201230

REACTIONS (1)
  - Blister [Unknown]
